FAERS Safety Report 13598630 (Version 2)
Quarter: 2017Q2

REPORT INFORMATION
  Report Type: Spontaneous
  Country: KR (occurrence: KR)
  Receive Date: 20170531
  Receipt Date: 20170602
  Transmission Date: 20170830
  Serious: Yes (Other)
  Sender: FDA-Public Use
  Company Number: KR-BAYER-2017-096574

PATIENT
  Sex: Male

DRUGS (1)
  1. STIVARGA [Suspect]
     Active Substance: REGORAFENIB
     Indication: COLORECTAL CANCER METASTATIC
     Dosage: UNK
     Route: 048
     Dates: end: 201703

REACTIONS (9)
  - Oedema peripheral [None]
  - Testicular swelling [None]
  - Eating disorder [None]
  - Abdominal distension [None]
  - Ascites [None]
  - Colorectal cancer [Not Recovered/Not Resolved]
  - Gait disturbance [None]
  - Testicular oedema [None]
  - Peripheral swelling [None]

NARRATIVE: CASE EVENT DATE: 2017
